FAERS Safety Report 25215971 (Version 2)
Quarter: 2025Q2

REPORT INFORMATION
  Report Type: Report from Study
  Country: DE (occurrence: DE)
  Receive Date: 20250418
  Receipt Date: 20250425
  Transmission Date: 20250717
  Serious: Yes (Life-Threatening, Other)
  Sender: MYLAN
  Company Number: None

PATIENT
  Age: 20 Year
  Sex: Male

DRUGS (5)
  1. TACROLIMUS [Suspect]
     Active Substance: TACROLIMUS
     Indication: Graft versus host disease
  2. RUXOLITINIB [Suspect]
     Active Substance: RUXOLITINIB
     Indication: Acute graft versus host disease
     Dosage: 10 MILLIGRAM, BID (10 MG, BID)
     Dates: start: 20170817
  3. METHYLPREDNISOLONE [Suspect]
     Active Substance: METHYLPREDNISOLONE
     Indication: Graft versus host disease
     Dosage: 80 MILLIGRAM, BID
     Dates: start: 20170812
  4. COTRIM [Concomitant]
     Active Substance: SULFAMETHOXAZOLE\TRIMETHOPRIM
     Indication: Pneumonia
  5. FOSCARNET [Concomitant]
     Active Substance: FOSCARNET
     Indication: Cytomegalovirus infection
     Dosage: 2630 GRAM, BID (2630 G, BID)
     Dates: start: 20170822

REACTIONS (5)
  - Respiratory failure [Recovered/Resolved]
  - Pulmonary alveolar haemorrhage [Recovered/Resolved]
  - Non-cardiac chest pain [Recovered/Resolved]
  - Blood lactate dehydrogenase increased [Unknown]
  - Pleural effusion [Unknown]

NARRATIVE: CASE EVENT DATE: 20170824
